FAERS Safety Report 20716525 (Version 1)
Quarter: 2022Q2

REPORT INFORMATION
  Report Type: Spontaneous
  Country: FR (occurrence: FR)
  Receive Date: 20220416
  Receipt Date: 20220416
  Transmission Date: 20220721
  Serious: Yes (Other)
  Sender: FDA-Public Use
  Company Number: None

PATIENT
  Age: 83 Year
  Sex: Female
  Weight: 53.9 kg

DRUGS (10)
  1. CITALOPRAM [Suspect]
     Active Substance: CITALOPRAM HYDROBROMIDE
     Indication: Depression
     Dosage: THERAPY START DATE  : ASKED BUT UNKNOWN, UNIT DOSE : 30 MG, FREQUENCY TIME : 1 DAYS
     Route: 048
     Dates: end: 20220320
  2. SPIRONOLACTONE [Suspect]
     Active Substance: SPIRONOLACTONE
     Indication: Hypertension
     Dosage: THERAPY START DATE  AND : ASKED BUT UNKNOWN, UNIT DOSE : 25 MG, FREQUENCY TIME : 1 DAYS
     Route: 048
     Dates: end: 20220311
  3. PANTOPRAZOLE [Suspect]
     Active Substance: PANTOPRAZOLE
     Indication: Dysphagia
     Dosage: THERAPY START DATE : ASKED BUT UNKNOWN, UNIT DOSE : 20 MG, FREQUENCY TIME : 1 DAYS
     Route: 048
     Dates: end: 20220311
  4. LANSOPRAZOLE [Suspect]
     Active Substance: LANSOPRAZOLE
     Indication: Dysphagia
     Dosage: THERAPY START DATE: ASKED BUT UNKNOWN, FREQUENCY TIME : 1 DAYS,  UNIT DOSE : 15 MG
     Route: 048
  5. ZOPICLONE [Concomitant]
     Active Substance: ZOPICLONE
     Dosage: THERAPY START DATE : ASKED BUT UNKNOWN, UNIT DOSE : 3.75 MG , FREQUENCY TIME : 1 AS REQUIRED
     Route: 048
     Dates: end: 20220321
  6. OXAZEPAM [Concomitant]
     Active Substance: OXAZEPAM
     Dosage: UNIT DOSE AND UNIT STRENGTH: 50 MG, THERAPY START DATE  : ASKED BUT UNKNOWN, FREQUENCY TIME :1 DAYS
     Route: 048
  7. ENTRESTO [Concomitant]
     Active Substance: SACUBITRIL\VALSARTAN
     Dosage: UNIT STRENGTH:97 MG/103 MG, UNIT DOSE : 1 DOSAGE FORMS , THERAPY START DATE  AND  THERAPY END DATE :
     Route: 048
  8. LERCANIDIPINE HYDROCHLORIDE [Concomitant]
     Active Substance: LERCANIDIPINE HYDROCHLORIDE
     Dosage: THERAPY START DATE : ASKED BUT UNKNOWN, UNIT DOSE : 10 MG , FREQUENCY TIME : 1 DAYS
     Route: 048
  9. ATORVASTATIN [Concomitant]
     Active Substance: ATORVASTATIN
     Dosage: UNIT DOSE :  40 MG, THERAPY START DATE : ASKED BUT UNKNOWN, FREQUENCY TIME :1 DAYS
     Route: 048
  10. KARDEGIC [Concomitant]
     Active Substance: ASPIRIN DL-LYSINE
     Dosage: UNIT STRENGTH AND UNIT DOSE : 75 MG, THERAPY START DATE: ASKED BUT UNKNOWN, FREQUENCY TIME : 1 DAYS
     Route: 048

REACTIONS (1)
  - Hyponatraemia [Recovered/Resolved]

NARRATIVE: CASE EVENT DATE: 20220312
